FAERS Safety Report 6607564-8 (Version None)
Quarter: 2010Q1

REPORT INFORMATION
  Report Type: 
  Country: None (occurrence: None)
  Receive Date: 20100301
  Receipt Date: 20100223
  Transmission Date: 20100710
  Serious: Yes (Death, Other)
  Sender: FDA-Public Use
  Company Number: PHEH2010US02641

PATIENT
  Sex: Female

DRUGS (11)
  1. EXJADE [Suspect]
     Dosage: 500 MG/ DAY
     Route: 048
  2. CALCIUM WITH VITAMIN D [Concomitant]
  3. FOLIC ACID [Concomitant]
  4. XANAX [Concomitant]
     Dosage: 0.26 MG, PRN
     Route: 048
  5. FISH OIL [Concomitant]
  6. PRILOSEC [Concomitant]
     Dosage: 40 MG, QD
  7. PEPCID [Concomitant]
     Dosage: 20 MG, QHS
  8. MAGIC MOUTHWASH [Concomitant]
     Dosage: SWISH AND SWALLOW FOUR TIMES DAILY
  9. NYSTATIN [Concomitant]
     Dosage: SWISH AND SWALLOW FOUR TIMES DAILY
  10. TYLENOL-500 [Concomitant]
     Dosage: UNK
  11. TRANSFUSIONS [Concomitant]

REACTIONS (27)
  - ACUTE MYELOID LEUKAEMIA [None]
  - APHTHOUS STOMATITIS [None]
  - ASTHENIA [None]
  - ATELECTASIS [None]
  - BREATH SOUNDS ABNORMAL [None]
  - DEATH [None]
  - DEHYDRATION [None]
  - DIARRHOEA [None]
  - DYSPHAGIA [None]
  - DYSPNOEA [None]
  - HEPATOMEGALY [None]
  - LEUKOCYTOSIS [None]
  - LUNG CONSOLIDATION [None]
  - MALNUTRITION [None]
  - MOBILITY DECREASED [None]
  - MUCOUS MEMBRANE DISORDER [None]
  - NEOPLASM PROGRESSION [None]
  - ODYNOPHAGIA [None]
  - ORAL CANDIDIASIS [None]
  - OROPHARYNGEAL PAIN [None]
  - OXYGEN SATURATION DECREASED [None]
  - PLEURAL EFFUSION [None]
  - PNEUMONIA [None]
  - SPLENOMEGALY [None]
  - STOMATITIS NECROTISING [None]
  - TACHYCARDIA [None]
  - WEIGHT DECREASED [None]
